FAERS Safety Report 15347518 (Version 1)
Quarter: 2018Q3

REPORT INFORMATION
  Report Type: Spontaneous
  Country: US (occurrence: US)
  Receive Date: 20180904
  Receipt Date: 20180904
  Transmission Date: 20181010
  Serious: No
  Sender: FDA-Public Use
  Company Number: US-BAYER-2018-165514

PATIENT
  Sex: Male

DRUGS (2)
  1. DELSYM [Concomitant]
     Active Substance: DEXTROMETHORPHAN
  2. CLARITIN [Suspect]
     Active Substance: LORATADINE
     Dosage: 1 DF, QD
     Route: 048

REACTIONS (1)
  - Somnolence [Unknown]
